FAERS Safety Report 4587518-6 (Version None)
Quarter: 2005Q1

REPORT INFORMATION
  Report Type: 
  Country: None (occurrence: None)
  Receive Date: 20050215
  Receipt Date: 20040915
  Transmission Date: 20050727
  Serious: No
  Sender: FDA-Public Use
  Company Number: C04-T-144

PATIENT
  Age: 76 Year
  Sex: Male
  Weight: 81.6475 kg

DRUGS (4)
  1. NITROGLYCERIN [Suspect]
     Indication: CHEST PAIN
     Dosage: 0.4 MG
  2. LAVOXIL [Concomitant]
  3. TOPROL-XL [Concomitant]
  4. OCUPRESS [Concomitant]

REACTIONS (1)
  - DRUG INEFFECTIVE [None]
